FAERS Safety Report 8602541-X (Version None)
Quarter: 2012Q3

REPORT INFORMATION
  Report Type: 
  Country: None (occurrence: None)
  Receive Date: 20120817
  Receipt Date: 20120809
  Transmission Date: 20120928
  Serious: Yes (Hospitalization)
  Sender: FDA-Public Use
  Company Number: PHEH2012US015816

PATIENT
  Sex: Female
  Weight: 48.073 kg

DRUGS (2)
  1. GILENYA [Suspect]
     Indication: MULTIPLE SCLEROSIS
     Dosage: 1 DF, QD
     Route: 048
     Dates: start: 20111102
  2. GILENYA [Suspect]
     Dosage: 1 DF, QD
     Route: 048

REACTIONS (1)
  - AORTIC ANEURYSM [None]
